FAERS Safety Report 23987263 (Version 2)
Quarter: 2024Q2

REPORT INFORMATION
  Report Type: Spontaneous
  Country: US (occurrence: US)
  Receive Date: 20240618
  Receipt Date: 20240625
  Transmission Date: 20240715
  Serious: Yes (Other)
  Sender: FDA-Public Use
  Company Number: US-PFIZER INC-PV202400078151

PATIENT
  Age: 32 Year
  Sex: Female

DRUGS (1)
  1. FENTANYL CITRATE [Suspect]
     Active Substance: FENTANYL CITRATE
     Dosage: UNK

REACTIONS (4)
  - Overdose [Recovered/Resolved]
  - Endocarditis [Recovered/Resolved]
  - Pulmonary embolism [Recovered/Resolved]
  - Septic embolus [Recovered/Resolved]
